FAERS Safety Report 8477551-6 (Version None)
Quarter: 2012Q2

REPORT INFORMATION
  Report Type: 
  Country: None (occurrence: None)
  Receive Date: 20120629
  Receipt Date: 20120621
  Transmission Date: 20120825
  Serious: Yes (Death, Hospitalization)
  Sender: FDA-Public Use
  Company Number: FR-NOVOPROD-354442

PATIENT
  Age: 83 Year
  Sex: Female

DRUGS (5)
  1. NOVONORM [Suspect]
     Indication: TYPE 2 DIABETES MELLITUS
     Dates: start: 20110717, end: 20110723
  2. NOVOLOG [Suspect]
     Route: 058
  3. DILTIAZEM HCL [Suspect]
     Dosage: 60 MG, QD
     Route: 048
     Dates: start: 20110717, end: 20110824
  4. AUGMENTIN '125' [Suspect]
     Indication: PNEUMONIA
     Dosage: UNK
     Dates: start: 20110717, end: 20110727
  5. AMLODIPINE BESYLATE [Suspect]
     Dosage: 5 MG, QD
     Route: 048
     Dates: start: 20110717, end: 20110824

REACTIONS (1)
  - DRUG RASH WITH EOSINOPHILIA AND SYSTEMIC SYMPTOMS [None]
